FAERS Safety Report 13131015 (Version 1)
Quarter: 2017Q1

REPORT INFORMATION
  Report Type: Spontaneous
  Country: FR (occurrence: FR)
  Receive Date: 20170119
  Receipt Date: 20170119
  Transmission Date: 20170428
  Serious: Yes (Life-Threatening)
  Sender: FDA-Public Use
  Company Number: FR-GUERBET LLC-1062161

PATIENT
  Age: 80 Year
  Sex: Female

DRUGS (1)
  1. OPTIRAY [Suspect]
     Active Substance: IOVERSOL
     Route: 042

REACTIONS (2)
  - Thermal burn [Recovered/Resolved]
  - Respiratory arrest [Recovered/Resolved]
